FAERS Safety Report 6870707-5 (Version None)
Quarter: 2010Q3

REPORT INFORMATION
  Report Type: 
  Country: None (occurrence: None)
  Receive Date: 20100723
  Receipt Date: 20100325
  Transmission Date: 20110219
  Serious: No
  Sender: FDA-Public Use
  Company Number: A0852013A

PATIENT
  Age: 58 Year
  Sex: Female

DRUGS (2)
  1. OLUX [Suspect]
     Indication: DERMATOSIS
     Dosage: 1APP AS REQUIRED
     Route: 061
     Dates: start: 20090101, end: 20100101
  2. PRAVASTATIN [Concomitant]

REACTIONS (1)
  - DRUG INEFFECTIVE [None]
